FAERS Safety Report 22302300 (Version 1)
Quarter: 2023Q2

REPORT INFORMATION
  Report Type: Spontaneous
  Country: US (occurrence: US)
  Receive Date: 20230510
  Receipt Date: 20230510
  Transmission Date: 20230721
  Serious: No
  Sender: FDA-Public Use
  Company Number: US-BIOGEN-2023BI01202277

PATIENT
  Sex: Female

DRUGS (8)
  1. TECFIDERA [Suspect]
     Active Substance: DIMETHYL FUMARATE
     Indication: Multiple sclerosis
     Route: 050
     Dates: start: 20160310
  2. TECFIDERA [Suspect]
     Active Substance: DIMETHYL FUMARATE
     Route: 050
     Dates: start: 20141017
  3. DULOXETINE HYDROCHLORIDE [Concomitant]
     Active Substance: DULOXETINE HYDROCHLORIDE
     Route: 050
  4. BUSPIRONE HCL [Concomitant]
     Active Substance: BUSPIRONE HYDROCHLORIDE
     Route: 050
  5. PROGESTERONE [Concomitant]
     Active Substance: PROGESTERONE
     Route: 050
  6. BIOTIN [Concomitant]
     Active Substance: BIOTIN
     Route: 050
  7. ACETAMINOPHEN\HYDROCODONE [Concomitant]
     Active Substance: ACETAMINOPHEN\HYDROCODONE
     Route: 050
  8. METHOCARBAMOL [Concomitant]
     Active Substance: METHOCARBAMOL
     Route: 050

REACTIONS (4)
  - Anxiety [Unknown]
  - Back pain [Unknown]
  - Gastrointestinal disorder [Unknown]
  - Flushing [Unknown]
